FAERS Safety Report 7096639-8 (Version None)
Quarter: 2010Q4

REPORT INFORMATION
  Report Type: 
  Country: None (occurrence: None)
  Receive Date: 20101111
  Receipt Date: 20101103
  Transmission Date: 20110411
  Serious: No
  Sender: FDA-Public Use
  Company Number: US-B.I. PHARMACEUTICALS,INC./RIDGEFIELD-2010-BP-12375BP

PATIENT
  Age: 65 Year
  Sex: Male

DRUGS (10)
  1. FLOMAX [Suspect]
     Indication: BENIGN PROSTATIC HYPERPLASIA
     Dosage: 0.4 MG
     Route: 048
     Dates: start: 20080101
  2. NAMENDA [Concomitant]
     Indication: MENTAL IMPAIRMENT
  3. M.V.I. [Concomitant]
     Indication: PROPHYLAXIS
  4. ROPINIROLE [Concomitant]
     Indication: RESTLESS LEGS SYNDROME
  5. ISOSORBIDE DINITRATE [Concomitant]
     Indication: CARDIAC DISORDER
  6. LEXAPRO [Concomitant]
     Indication: BLOOD CHOLESTEROL INCREASED
  7. TOPROL-XL [Concomitant]
     Indication: BLOOD PRESSURE INCREASED
  8. BENICAR [Concomitant]
     Indication: BLOOD PRESSURE INCREASED
  9. LIPITOR [Concomitant]
     Indication: BLOOD CHOLESTEROL INCREASED
  10. TRICOR [Concomitant]
     Indication: BLOOD CHOLESTEROL INCREASED

REACTIONS (2)
  - CONSTIPATION [None]
  - DRUG INEFFECTIVE [None]
